FAERS Safety Report 9289097 (Version 2)
Quarter: 2013Q2

REPORT INFORMATION
  Report Type: Spontaneous
  Country: US (occurrence: US)
  Receive Date: 20130514
  Receipt Date: 20130521
  Transmission Date: 20140414
  Serious: Yes (Other)
  Sender: FDA-Public Use
  Company Number: US-PFIZER INC-2013145456

PATIENT
  Age: 53 Year
  Sex: Female
  Weight: 111 kg

DRUGS (2)
  1. LIPITOR [Suspect]
     Indication: BLOOD CHOLESTEROL INCREASED
     Dosage: 40 MG, 1X/DAY
     Route: 048
     Dates: start: 200906
  2. ASPIRIN [Concomitant]
     Indication: HEADACHE
     Dosage: 325 MG, AS NEEDED

REACTIONS (8)
  - Visual impairment [Unknown]
  - Dry mouth [Not Recovered/Not Resolved]
  - Tongue dry [Not Recovered/Not Resolved]
  - Dry skin [Not Recovered/Not Resolved]
  - Pollakiuria [Not Recovered/Not Resolved]
  - Dry throat [Not Recovered/Not Resolved]
  - Product size issue [Unknown]
  - Glucose urine present [Unknown]
